FAERS Safety Report 23628142 (Version 1)
Quarter: 2024Q1

REPORT INFORMATION
  Report Type: Spontaneous
  Country: DE (occurrence: None)
  Receive Date: 20240313
  Receipt Date: 20240313
  Transmission Date: 20240409
  Serious: Yes (Other)
  Sender: FDA-Public Use
  Company Number: 2024A061987

PATIENT
  Age: 67 Year
  Sex: Female
  Weight: 84 kg

DRUGS (4)
  1. OMEPRAZOLE [Suspect]
     Active Substance: OMEPRAZOLE
     Indication: Helicobacter gastritis
     Dosage: 40 MG 2X180.0MG UNKNOWN
     Route: 048
  2. PYLERA [Suspect]
     Active Substance: BISMUTH SUBCITRATE POTASSIUM\METRONIDAZOLE\TETRACYCLINE HYDROCHLORIDE
     Indication: Helicobacter gastritis
     Dosage: 4X3
     Route: 048
  3. LERCANDIPIN [Concomitant]
  4. LISILICH COMP [Concomitant]

REACTIONS (1)
  - Polymyalgia rheumatica [Not Recovered/Not Resolved]

NARRATIVE: CASE EVENT DATE: 20240116
